FAERS Safety Report 24193848 (Version 1)
Quarter: 2024Q3

REPORT INFORMATION
  Report Type: Spontaneous
  Country: US (occurrence: US)
  Receive Date: 20240809
  Receipt Date: 20240809
  Transmission Date: 20241017
  Serious: No
  Sender: SANOFI AVENTIS
  Company Number: US-SA-SAC20240805001475

PATIENT
  Sex: Female
  Weight: 65.77 kg

DRUGS (4)
  1. DUPIXENT [Suspect]
     Active Substance: DUPILUMAB
     Indication: Dermatitis atopic
     Dosage: 300 MG, QOW
     Route: 058
     Dates: start: 202008
  2. ZYRTEC-D ALLERGY AND CONGESTION [Concomitant]
     Active Substance: CETIRIZINE HYDROCHLORIDE\PSEUDOEPHEDRINE HYDROCHLORIDE
     Indication: Seasonal allergy
     Dosage: UNK
  3. NEXPLANON [Concomitant]
     Active Substance: ETONOGESTREL
     Dosage: UNK
  4. VIT D [VITAMIN D NOS] [Concomitant]
     Dosage: UNK

REACTIONS (1)
  - Skin discolouration [Unknown]
